FAERS Safety Report 19496993 (Version 1)
Quarter: 2021Q3

REPORT INFORMATION
  Report Type: Spontaneous
  Country: US (occurrence: US)
  Receive Date: 20210705
  Receipt Date: 20210705
  Transmission Date: 20211014
  Serious: Yes (Hospitalization)
  Sender: FDA-Public Use
  Company Number: None

PATIENT
  Sex: Female

DRUGS (11)
  1. IBUPROFEN. [Concomitant]
     Active Substance: IBUPROFEN
  2. LEVOTHYROXIN [Concomitant]
     Active Substance: LEVOTHYROXINE
  3. OXALIPLATIN. [Concomitant]
     Active Substance: OXALIPLATIN
  4. DULCOLAX NOS [Concomitant]
     Active Substance: BISACODYL OR DOCUSATE SODIUM
  5. DILTIAZEM. [Concomitant]
     Active Substance: DILTIAZEM
  6. DUKOXETINE [Concomitant]
  7. PREDNISONE. [Concomitant]
     Active Substance: PREDNISONE
  8. AVASTIN [Concomitant]
     Active Substance: BEVACIZUMAB
  9. TYLENOL [Concomitant]
     Active Substance: ACETAMINOPHEN
  10. CAPECITABINE 500 MG TAB [Suspect]
     Active Substance: CAPECITABINE
     Indication: COLON CANCER
  11. CODEINE SULF [Concomitant]

REACTIONS (2)
  - Oesophageal spasm [None]
  - Chest pain [None]
